FAERS Safety Report 4874705-2 (Version None)
Quarter: 2006Q1

REPORT INFORMATION
  Report Type: 
  Country: None (occurrence: None)
  Receive Date: 20060106
  Receipt Date: 20051109
  Transmission Date: 20060701
  Serious: Yes (Other)
  Sender: FDA-Public Use
  Company Number: US-MERCK-0511USA02834

PATIENT
  Age: 57 Year
  Sex: Male
  Weight: 84 kg

DRUGS (15)
  1. VYTORIN [Suspect]
     Indication: HYPERLIPIDAEMIA
     Route: 048
     Dates: start: 20050615, end: 20050901
  2. VYTORIN [Suspect]
     Route: 048
     Dates: start: 20050501, end: 20050615
  3. VOLTAREN [Concomitant]
     Indication: ARTHRITIS
     Route: 048
  4. VOLTAREN [Concomitant]
     Indication: PAIN
     Route: 048
  5. ACTOS [Concomitant]
     Indication: DIABETES MELLITUS
     Route: 065
  6. GEMFIBROZIL [Concomitant]
     Indication: LIPIDS INCREASED
     Route: 048
  7. METOPROLOL [Concomitant]
     Indication: HYPERTENSION
     Route: 048
  8. NEURONTIN [Concomitant]
     Indication: NEUROPATHY
     Route: 048
  9. NEURONTIN [Concomitant]
     Indication: BACK PAIN
     Route: 048
  10. TOPAMAX [Concomitant]
     Indication: NEUROPATHY
     Route: 048
  11. WELLBUTRIN SR [Concomitant]
     Indication: DEPRESSION
     Route: 048
  12. NEXIUM [Concomitant]
     Indication: GASTROOESOPHAGEAL REFLUX DISEASE
     Route: 048
  13. ASPIRIN [Concomitant]
     Indication: PROPHYLAXIS
     Route: 048
  14. TRAMADOL HYDROCHLORIDE [Concomitant]
     Indication: PAIN
     Route: 048
  15. TRICOR [Suspect]
     Route: 048
     Dates: start: 20050501, end: 20050901

REACTIONS (6)
  - ABDOMINAL PAIN LOWER [None]
  - ALANINE AMINOTRANSFERASE INCREASED [None]
  - BLOOD CHOLESTEROL INCREASED [None]
  - BLOOD TRIGLYCERIDES INCREASED [None]
  - HEPATIC STEATOSIS [None]
  - HIGH DENSITY LIPOPROTEIN DECREASED [None]
